FAERS Safety Report 17581106 (Version 3)
Quarter: 2020Q2

REPORT INFORMATION
  Report Type: Not Available
  Country: IL (occurrence: IL)
  Receive Date: 20200325
  Receipt Date: 20200401
  Transmission Date: 20200713
  Serious: No
  Sender: FDA-Public Use
  Company Number: IL-LEXICON PHARMACEUTICALS, INC-20-1606-00233

PATIENT
  Age: 70 Year
  Sex: Female

DRUGS (5)
  1. SOMATULINE [Suspect]
     Active Substance: LANREOTIDE ACETATE
     Indication: NEUROENDOCRINE TUMOUR
     Dates: start: 20111129
  2. AFINITOR [Suspect]
     Active Substance: EVEROLIMUS
     Indication: PRODUCT USED FOR UNKNOWN INDICATION
     Route: 048
     Dates: start: 20191122
  3. XERMELO [Concomitant]
     Active Substance: TELOTRISTAT ETHYL
     Indication: 5-HYDROXYINDOLACETIC ACID IN URINE
     Route: 065
  4. LIPITOR [Concomitant]
     Active Substance: ATORVASTATIN CALCIUM
  5. FOLEX [Concomitant]

REACTIONS (1)
  - Pruritus [Not Recovered/Not Resolved]

NARRATIVE: CASE EVENT DATE: 202002
